FAERS Safety Report 9006990 (Version 1)
Quarter: 2013Q1

REPORT INFORMATION
  Report Type: Spontaneous
  Country: US (occurrence: US)
  Receive Date: 20130110
  Receipt Date: 20130110
  Transmission Date: 20140127
  Serious: Yes (Hospitalization)
  Sender: FDA-Public Use
  Company Number: US-009507513-1301USA001581

PATIENT
  Age: 73 Year
  Sex: Female

DRUGS (12)
  1. SINGULAIR [Suspect]
     Indication: ILL-DEFINED DISORDER
     Dosage: 10 MG, UNKNOWN
     Route: 048
  2. AMINOPHYLLINE [Suspect]
     Dosage: 225 MG, BID
     Route: 048
  3. CARBOCYSTEINE [Suspect]
     Dosage: 750 MG, TID
  4. DOXYCYCLINE HYCLATE [Suspect]
     Dosage: 100 MG, BID
  5. TRIMETHOPRIM [Concomitant]
  6. FLUVASTATIN SODIUM [Concomitant]
  7. SERETIDE [Concomitant]
  8. ASPIRIN [Concomitant]
  9. OMEPRAZOLE [Concomitant]
  10. VALSARTAN [Concomitant]
  11. RISEDRONATE SODIUM [Concomitant]
  12. COMBIVENT [Concomitant]

REACTIONS (5)
  - Supraventricular tachycardia [Unknown]
  - Hypotension [Unknown]
  - Flushing [Unknown]
  - Drug level above therapeutic [Unknown]
  - Abdominal pain upper [Unknown]
